FAERS Safety Report 5195757-9 (Version None)
Quarter: 2006Q4

REPORT INFORMATION
  Report Type: 
  Country: None (occurrence: None)
  Receive Date: 20061227
  Receipt Date: 20061206
  Transmission Date: 20070319
  Serious: Yes (Hospitalization)
  Sender: FDA-Public Use
  Company Number: 2006BI013489

PATIENT
  Age: 59 Year
  Sex: Female

DRUGS (12)
  1. NATALIZUMAB [Suspect]
     Indication: MULTIPLE SCLEROSIS
     Dosage: 300 MG; QM; IV
     Route: 042
     Dates: end: 20050201
  2. NATALIZUMAB [Suspect]
     Indication: MULTIPLE SCLEROSIS
     Dosage: 300 MG; QM; IV
     Route: 042
     Dates: start: 20060920, end: 20060920
  3. TRAZODONE HCL [Concomitant]
  4. PROMETHAZINE [Concomitant]
  5. LORAZEPAM [Concomitant]
  6. METHOCARBAMOL [Concomitant]
  7. LORTAB [Concomitant]
  8. CYMBALTA [Concomitant]
  9. AMANTADINE HCL [Concomitant]
  10. KLOR-CON [Concomitant]
  11. NEXIUM [Concomitant]
  12. MAGNESIUM [Concomitant]

REACTIONS (9)
  - ARTHRALGIA [None]
  - CHEST PAIN [None]
  - DYSPNOEA [None]
  - FLUSHING [None]
  - HYPERSENSITIVITY [None]
  - MUSCLE SPASMS [None]
  - PRURITUS [None]
  - SWELLING [None]
  - URTICARIA [None]
